FAERS Safety Report 4521042-1 (Version None)
Quarter: 2004Q4

REPORT INFORMATION
  Report Type: 
  Country: None (occurrence: None)
  Receive Date: 20041208
  Receipt Date: 20041114
  Transmission Date: 20050328
  Serious: Yes (Hospitalization)
  Sender: FDA-Public Use
  Company Number: 200413395EU

PATIENT
  Age: 14 Month
  Sex: Male

DRUGS (4)
  1. RIFADIN [Suspect]
     Indication: PRURITUS
     Route: 048
     Dates: start: 20040501, end: 20041105
  2. VITAMIN K [Concomitant]
  3. VITAMIN A+D [Concomitant]
  4. VITAMIN E [Concomitant]

REACTIONS (1)
  - AGRANULOCYTOSIS [None]
